FAERS Safety Report 7498538-6 (Version None)
Quarter: 2011Q2

REPORT INFORMATION
  Report Type: 
  Country: None (occurrence: None)
  Receive Date: 20110524
  Receipt Date: 20081215
  Transmission Date: 20111010
  Serious: Yes (Other)
  Sender: FDA-Public Use
  Company Number: US-BAYER-200840443NA

PATIENT
  Age: 56 Year
  Sex: Female
  Weight: 80.3 kg

DRUGS (23)
  1. PLAVIX [Concomitant]
     Dosage: 75 MG, QD
  2. CEFUROXIME [Concomitant]
     Dosage: UNK
     Route: 042
     Dates: start: 20060404, end: 20060404
  3. PREVACID [Concomitant]
     Dosage: 30 MG, QD
  4. PROTAMINE SULFATE [Concomitant]
     Dosage: UNK
     Dates: start: 20060404, end: 20060404
  5. MILRINONE [Concomitant]
     Route: 041
  6. RED BLOOD CELLS [Concomitant]
     Dosage: UNK
     Route: 042
     Dates: start: 20060404, end: 20060404
  7. ZETIA [Concomitant]
     Dosage: 10 MG DAILY
  8. HEPARIN [Concomitant]
     Dosage: UNK
     Route: 041
     Dates: start: 20060404, end: 20060404
  9. DEMADEX [Concomitant]
     Dosage: 10 MG DAILY
  10. NITROGLYCERIN [Concomitant]
  11. ASPIRIN [Concomitant]
     Dosage: 81 MG, QD
  12. DOPAMINE HCL [Concomitant]
     Dosage: UNK
     Route: 041
     Dates: start: 20060404, end: 20060404
  13. TRASYLOL [Suspect]
     Indication: CORONARY ARTERY BYPASS
     Dosage: 1 ML TEST DOSE
     Route: 042
     Dates: start: 20060404, end: 20060404
  14. INSULIN [Concomitant]
     Dosage: UNK
     Route: 041
     Dates: start: 20060404, end: 20060404
  15. LEVOPHED [Concomitant]
     Dosage: UNK
     Route: 041
     Dates: start: 20060404, end: 20060404
  16. TRASYLOL [Suspect]
     Dosage: 50 ML/HOUR
     Route: 041
     Dates: start: 20060404, end: 20060404
  17. ISORDIL [Concomitant]
     Dosage: 10 MG, UNK
  18. POTASSIUM CHLORIDE [Concomitant]
     Dosage: DAILY
  19. LASIX [Concomitant]
     Dosage: UNK
     Route: 042
     Dates: start: 20060404, end: 20060404
  20. ALBUMIN (HUMAN) [Concomitant]
     Dosage: UNK
     Route: 042
     Dates: start: 20060404, end: 20060404
  21. NOVOLIN [INSULIN] [Concomitant]
     Dosage: SLIDING SCALE
  22. LOPRESSOR [Concomitant]
     Dosage: 25 MG, BID
  23. SYNTHROID [Concomitant]
     Dosage: 0.5 MG DAILY

REACTIONS (5)
  - RENAL FAILURE ACUTE [None]
  - PAIN [None]
  - UNEVALUABLE EVENT [None]
  - RENAL FAILURE [None]
  - INJURY [None]
